FAERS Safety Report 23520956 (Version 1)
Quarter: 2024Q1

REPORT INFORMATION
  Report Type: Report from Study
  Country: DO (occurrence: None)
  Receive Date: 20240214
  Receipt Date: 20240214
  Transmission Date: 20240409
  Serious: Yes (Disabling, Other)
  Sender: FDA-Public Use
  Company Number: 2024A032673

PATIENT
  Age: 566 Month
  Sex: Male

DRUGS (1)
  1. XIGDUO XR [Suspect]
     Active Substance: DAPAGLIFLOZIN PROPANEDIOL\METFORMIN HYDROCHLORIDE
     Indication: Diabetes mellitus
     Route: 048
     Dates: start: 2022

REACTIONS (3)
  - Retinal detachment [Unknown]
  - Blindness [Unknown]
  - Depression [Unknown]

NARRATIVE: CASE EVENT DATE: 20231001
